FAERS Safety Report 20250999 (Version 1)
Quarter: 2021Q4

REPORT INFORMATION
  Report Type: Spontaneous
  Country: US (occurrence: US)
  Receive Date: 20211229
  Receipt Date: 20211229
  Transmission Date: 20220304
  Serious: Yes (Hospitalization, Other)
  Sender: FDA-Public Use
  Company Number: US-CLOVIS ONCOLOGY-CLO-2021-001122

PATIENT
  Age: 67 Year
  Sex: Female
  Weight: 83.447 kg

DRUGS (9)
  1. RUBRACA [Suspect]
     Active Substance: RUCAPARIB CAMSYLATE
     Indication: Malignant peritoneal neoplasm
     Dosage: 600 MILLIGRAM, BID
     Route: 048
     Dates: start: 20210430, end: 20210625
  2. RUBRACA [Suspect]
     Active Substance: RUCAPARIB CAMSYLATE
     Dosage: 500 MILLIGRAM, BID
     Dates: start: 20210706, end: 202107
  3. SIMVASTATIN [Concomitant]
     Active Substance: SIMVASTATIN
     Indication: Product used for unknown indication
     Dosage: 40 MILLIGRAM, QD
     Route: 048
  4. TRAVOPROST [Concomitant]
     Active Substance: TRAVOPROST
     Indication: Product used for unknown indication
     Dosage: 0.004% 1 DROP BOTH EYES QHS
     Route: 047
  5. METOPROLOL [Concomitant]
     Active Substance: METOPROLOL
     Indication: Product used for unknown indication
     Dosage: 100 MILLIGRAM, BID
     Route: 048
  6. VITAMINS [Concomitant]
     Active Substance: VITAMINS
     Indication: Product used for unknown indication
     Dosage: 1 TABLET QD
     Route: 048
  7. LIDOCAINE PRILOCAINE BIOGARAN [Concomitant]
     Indication: Pain
     Dosage: 2.5%-2.5% 1 APPLICATION PRN
     Route: 061
  8. ACETAMINOPHEN\NIMESULIDE [Concomitant]
     Active Substance: ACETAMINOPHEN\NIMESULIDE
     Indication: Product used for unknown indication
     Dosage: 6.8 MILLIGRAM, BID
     Route: 047
  9. LEVOTHYROXINE [Concomitant]
     Active Substance: LEVOTHYROXINE
     Indication: Product used for unknown indication
     Dosage: 75 MICROGRAM, QD
     Route: 048

REACTIONS (1)
  - Anaemia [Recovered/Resolved]

NARRATIVE: CASE EVENT DATE: 20210625
